FAERS Safety Report 17873475 (Version 1)
Quarter: 2020Q2

REPORT INFORMATION
  Report Type: Spontaneous
  Country: FR (occurrence: FR)
  Receive Date: 20200609
  Receipt Date: 20200609
  Transmission Date: 20200714
  Serious: Yes (Other)
  Sender: FDA-Public Use
  Company Number: FR-AUROBINDO-AUR-APL-2020-027467

PATIENT
  Age: 92 Year
  Sex: Male
  Weight: 53 kg

DRUGS (4)
  1. HAVLANE [Concomitant]
     Active Substance: LOPRAZOLAM
     Indication: PRODUCT USED FOR UNKNOWN INDICATION
     Dosage: UNK
     Route: 065
  2. PASSIFLORE [Concomitant]
     Active Substance: HERBALS\HOMEOPATHICS\PASSIFLORA INCARNATA FLOWER
     Indication: PRODUCT USED FOR UNKNOWN INDICATION
     Dosage: UNK
     Route: 065
  3. CLAVULANIC ACID [Suspect]
     Active Substance: CLAVULANIC ACID
     Indication: WOUND INFECTION
     Dosage: 375 MILLIGRAM, ONCE A DAY
     Route: 048
     Dates: start: 20200217, end: 20200225
  4. AMOXICILLIN. [Suspect]
     Active Substance: AMOXICILLIN
     Indication: WOUND INFECTION
     Dosage: 3 GRAM, DAILY
     Route: 048
     Dates: start: 20200217, end: 20200225

REACTIONS (7)
  - Fatigue [Recovered/Resolved]
  - Liver injury [Recovered/Resolved]
  - Diarrhoea [Recovered/Resolved]
  - Dysgeusia [Recovered/Resolved]
  - Decreased appetite [Recovered/Resolved]
  - Faeces pale [Recovered/Resolved]
  - Jaundice [Recovered/Resolved]

NARRATIVE: CASE EVENT DATE: 20200225
